FAERS Safety Report 26207631 (Version 1)
Quarter: 2025Q4

REPORT INFORMATION
  Report Type: Spontaneous
  Country: US (occurrence: None)
  Receive Date: 20251224
  Receipt Date: 20251224
  Transmission Date: 20260118
  Serious: Yes (Other)
  Sender: FDA-CTU
  Company Number: None

PATIENT
  Age: 51 Year
  Sex: Female
  Weight: 63.9 kg

DRUGS (6)
  1. COSMETICS [Suspect]
     Active Substance: COSMETICS
     Indication: Dermatitis contact
     Route: 061
     Dates: start: 20251218, end: 20251221
  2. COSMETICS [Suspect]
     Active Substance: COSMETICS
  3. Iron prescription [Concomitant]
  4. Olly multivitamin [Concomitant]
  5. mini nutrition magnesium glycinate [Concomitant]
  6. nitric at saffron [Concomitant]

REACTIONS (11)
  - Application site pruritus [None]
  - Pruritus [None]
  - Pruritus [None]
  - Pruritus [None]
  - Ear pruritus [None]
  - Scab [None]
  - Pyrexia [None]
  - Scratch [None]
  - Erythema [None]
  - Eye swelling [None]
  - Skin burning sensation [None]

NARRATIVE: CASE EVENT DATE: 20251224
